FAERS Safety Report 17023831 (Version 3)
Quarter: 2020Q3

REPORT INFORMATION
  Report Type: Spontaneous
  Country: US (occurrence: US)
  Receive Date: 20191113
  Receipt Date: 20200807
  Transmission Date: 20201102
  Serious: Yes (Other)
  Sender: FDA-Public Use
  Company Number: US-BIOGEN-2019BI00804982

PATIENT
  Sex: Male

DRUGS (1)
  1. TECFIDERA [Suspect]
     Active Substance: DIMETHYL FUMARATE
     Indication: MULTIPLE SCLEROSIS
     Dosage: MAINTENANCE DOSE
     Route: 048
     Dates: start: 20180405

REACTIONS (7)
  - Multiple sclerosis [Recovered/Resolved]
  - Radiculopathy [Recovered/Resolved]
  - Spinal cord compression [Unknown]
  - Mobility decreased [Not Recovered/Not Resolved]
  - Central nervous system lesion [Unknown]
  - Spinal cord disorder [Unknown]
  - Tremor [Recovered/Resolved]

NARRATIVE: CASE EVENT DATE: 2017
